FAERS Safety Report 21032665 (Version 1)
Quarter: 2022Q3

REPORT INFORMATION
  Report Type: Spontaneous
  Country: US (occurrence: US)
  Receive Date: 20220701
  Receipt Date: 20220701
  Transmission Date: 20221026
  Serious: No
  Sender: FDA-Public Use
  Company Number: US-Suven-000016

PATIENT
  Age: 38 Year
  Sex: Female

DRUGS (2)
  1. MALATHION [Suspect]
     Active Substance: MALATHION
     Indication: Lice infestation
     Dosage: STRENGTH: 0.5%, ONLY USED THE ONCE
     Dates: start: 20220309, end: 20220310
  2. MALATHION [Suspect]
     Active Substance: MALATHION
     Indication: Lice infestation
     Dosage: STRENGTH: 0.5%
     Dates: start: 20220321, end: 20220321

REACTIONS (4)
  - Skin irritation [Recovered/Resolved]
  - Heart rate increased [Recovering/Resolving]
  - Rash [Recovered/Resolved]
  - Hypersensitivity [Recovered/Resolved]

NARRATIVE: CASE EVENT DATE: 20220310
